FAERS Safety Report 21290563 (Version 1)
Quarter: 2022Q3

REPORT INFORMATION
  Report Type: Report from Study
  Country: AU (occurrence: AU)
  Receive Date: 20220903
  Receipt Date: 20220903
  Transmission Date: 20221026
  Serious: Yes (Hospitalization, Other)
  Sender: FDA-Public Use
  Company Number: AU-NOVARTISPH-NVSC2022AU197768

PATIENT
  Sex: Female

DRUGS (1)
  1. COSENTYX [Suspect]
     Active Substance: SECUKINUMAB
     Indication: Ankylosing spondylitis
     Dosage: 150 MG, BIW
     Route: 058
     Dates: start: 20190310

REACTIONS (4)
  - Cerebrovascular accident [Unknown]
  - Back pain [Unknown]
  - Intervertebral disc protrusion [Unknown]
  - Inappropriate schedule of product administration [Unknown]
